FAERS Safety Report 11099661 (Version 1)
Quarter: 2015Q2

REPORT INFORMATION
  Report Type: Spontaneous
  Country: FR (occurrence: None)
  Receive Date: 20150506
  Receipt Date: 20150506
  Transmission Date: 20150821
  Serious: Yes (Hospitalization)
  Sender: FDA-Public Use
  Company Number: 2849736

PATIENT
  Age: 84 Year
  Sex: Male

DRUGS (1)
  1. LEVETIRACTAM [Suspect]
     Active Substance: LEVETIRACETAM
     Indication: PARTIAL SEIZURES
     Dosage: 500 MG MILLIGRAM(S), 2 DAY, UNKNOWN
     Dates: start: 20140913

REACTIONS (6)
  - Anxiety [None]
  - Aggression [None]
  - Affect lability [None]
  - Suicidal ideation [None]
  - Depression [None]
  - Suicide attempt [None]

NARRATIVE: CASE EVENT DATE: 20140923
